FAERS Safety Report 4322345-6 (Version None)
Quarter: 2004Q1

REPORT INFORMATION
  Report Type: 
  Country: None (occurrence: None)
  Receive Date: 20040319
  Receipt Date: 20040305
  Transmission Date: 20041129
  Serious: Yes (Hospitalization)
  Sender: FDA-Public Use
  Company Number: 2004015679

PATIENT
  Age: 73 Year
  Sex: Male

DRUGS (8)
  1. VIAGRA [Suspect]
     Indication: ILL-DEFINED DISORDER
     Dates: start: 20000101
  2. FLEICAINIDE ACETATE (FLEICAINIDE ACETATE) [Concomitant]
  3. ACETYLSALICYLIC ACID SRT [Concomitant]
  4. DIGOXIN [Concomitant]
  5. NICARDIPINE HCL [Concomitant]
  6. APOREX (PARACETAMOL, DEXTROPROPOXYPHENE HYDROCHLORIDE) [Concomitant]
  7. ACETAMINOPHEN [Concomitant]
  8. SERENOA REPENS (SERENOA REPENS) [Concomitant]

REACTIONS (1)
  - PROSTATE CANCER [None]
